FAERS Safety Report 13011913 (Version 1)
Quarter: 2016Q4

REPORT INFORMATION
  Report Type: Report from Study
  Country: US (occurrence: US)
  Receive Date: 20161209
  Receipt Date: 20161209
  Transmission Date: 20170207
  Serious: No
  Sender: FDA-Public Use
  Company Number: PHEH2016US031036

PATIENT
  Sex: Male

DRUGS (3)
  1. TASIGNA [Suspect]
     Active Substance: NILOTINIB
     Dosage: HALF THE DOSE
     Route: 048
  2. TASIGNA [Suspect]
     Active Substance: NILOTINIB
     Indication: LEUKAEMIA
     Dosage: UNK
     Route: 048
     Dates: start: 201405
  3. TASIGNA [Suspect]
     Active Substance: NILOTINIB
     Dosage: 600 MG, QD (4 PILLS PER DAY 2 IN AM, 2 IN PM Q12 HRS)
     Route: 048

REACTIONS (2)
  - Full blood count increased [Unknown]
  - Palpitations [Unknown]

NARRATIVE: CASE EVENT DATE: 2015
